FAERS Safety Report 24180818 (Version 1)
Quarter: 2024Q3

REPORT INFORMATION
  Report Type: Spontaneous
  Country: US (occurrence: US)
  Receive Date: 20240806
  Receipt Date: 20240806
  Transmission Date: 20241017
  Serious: No
  Sender: BRISTOL MYERS SQUIBB
  Company Number: US-BRISTOL-MYERS SQUIBB COMPANY-2024-124238

PATIENT
  Age: 72 Year
  Sex: Male
  Weight: 78.3 kg

DRUGS (1)
  1. POMALIDOMIDE [Suspect]
     Active Substance: POMALIDOMIDE
     Indication: Product used for unknown indication
     Dosage: X21 DAYS EACH CYCLE
     Route: 048
     Dates: start: 20180626, end: 20180911

REACTIONS (1)
  - Gastrointestinal disorder [Unknown]
